FAERS Safety Report 5313098-3 (Version None)
Quarter: 2007Q2

REPORT INFORMATION
  Report Type: 
  Country: None (occurrence: None)
  Receive Date: 20070424
  Receipt Date: 20070411
  Transmission Date: 20071010
  Serious: Yes (Life-Threatening, Hospitalization)
  Sender: FDA-Public Use
  Company Number: GXBR2007US00936

PATIENT
  Age: 73 Year
  Sex: Male

DRUGS (5)
  1. SPIRONOLACTONE [Suspect]
     Indication: CARDIAC FAILURE CONGESTIVE
     Dates: start: 20060514, end: 20070329
  2. POTASSIUM CHLORIDE [Suspect]
     Indication: ELECTROLYTE SUBSTITUTION THERAPY
     Dates: start: 20070307, end: 20070329
  3. BUMEX (BUMETANDIDE) [Concomitant]
  4. LISINOPRIL [Concomitant]
  5. DABIGATRAN ETEXILATE (DABIGATRAN ETEXILATE) [Concomitant]

REACTIONS (6)
  - ATRIAL FIBRILLATION [None]
  - ATRIOVENTRICULAR BLOCK COMPLETE [None]
  - BLOOD CREATININE INCREASED [None]
  - BRADYCARDIA [None]
  - DYSPNOEA [None]
  - HYPERKALAEMIA [None]
